FAERS Safety Report 7629344-7 (Version None)
Quarter: 2011Q3

REPORT INFORMATION
  Report Type: 
  Country: None (occurrence: None)
  Receive Date: 20110722
  Receipt Date: 20110715
  Transmission Date: 20111222
  Serious: Yes (Other)
  Sender: FDA-Public Use
  Company Number: CN-PFIZER INC-CN-WYE-G05031009

PATIENT
  Age: 20 Year
  Sex: Male
  Weight: 40 kg

DRUGS (11)
  1. ANTIHEMOPHILIC FACTOR (HUMAN) [Suspect]
     Dosage: 1000.0IU GIVEN ON DEMAND
     Route: 040
     Dates: start: 20091013, end: 20091013
  2. ANTIHEMOPHILIC FACTOR (HUMAN) [Suspect]
     Dosage: 1000.0IU GIVEN ON DEMAND
     Route: 040
     Dates: start: 20090908, end: 20090908
  3. ANTIHEMOPHILIC FACTOR (HUMAN) [Suspect]
     Dosage: 500.0IU GIVEN ON DEMAND
     Route: 040
     Dates: start: 20090515, end: 20090515
  4. ANTIHEMOPHILIC FACTOR (HUMAN) [Suspect]
     Dosage: 500.0IU GIVEN ON DEMAND
     Route: 040
     Dates: start: 20090918, end: 20090918
  5. ANTIHEMOPHILIC FACTOR (HUMAN) [Suspect]
     Indication: FACTOR VIII DEFICIENCY
     Dosage: 2500.0IU GIVEN FOR INITIAL RECOVERY
     Route: 040
     Dates: start: 20090429, end: 20090429
  6. ANTIHEMOPHILIC FACTOR (HUMAN) [Suspect]
     Dosage: 1000.0IU GIVEN ON DEMAND
     Route: 040
     Dates: start: 20090526, end: 20090526
  7. ANTIHEMOPHILIC FACTOR (HUMAN) [Suspect]
     Dosage: 1000.0IU GIVEN ON DEMAND
     Route: 040
     Dates: start: 20090925, end: 20090925
  8. ANTIHEMOPHILIC FACTOR (HUMAN) [Suspect]
     Dosage: 2000.0IU GIVEN FOR FINAL RECOVERY
     Route: 040
     Dates: start: 20091102, end: 20091102
  9. ANTIHEMOPHILIC FACTOR (HUMAN) [Suspect]
     Dosage: 1000.0IU GIVEN ON DEMAND
     Route: 040
     Dates: start: 20090929, end: 20090929
  10. ANTIHEMOPHILIC FACTOR (HUMAN) [Suspect]
     Dosage: 1000.0IU GIVEN ON DEMAND
     Route: 040
     Dates: start: 20090708, end: 20090708
  11. ANTIHEMOPHILIC FACTOR (HUMAN) [Suspect]
     Dosage: 1000.0IU GIVEN ON DEMAND
     Route: 040
     Dates: start: 20091016, end: 20091016

REACTIONS (1)
  - FACTOR VIII INHIBITION [None]
